FAERS Safety Report 9891753 (Version 1)
Quarter: 2014Q1

REPORT INFORMATION
  Report Type: Spontaneous
  Country: US (occurrence: US)
  Receive Date: 20140212
  Receipt Date: 20140212
  Transmission Date: 20141002
  Serious: No
  Sender: FDA-Public Use
  Company Number: US-B.I. PHARMACEUTICALS,INC./RIDGEFIELD-2014-BI-05659BP

PATIENT
  Sex: Male

DRUGS (2)
  1. TRADJENTA [Suspect]
     Indication: PRODUCT USED FOR UNKNOWN INDICATION
     Dosage: 5 MG
     Route: 048
     Dates: start: 201205, end: 20131129
  2. MICARDIS HCT [Concomitant]
     Dosage: STRENGTH: 80 MG/ 25 MG; DAILY DOSE: 80 MG/ 25 MG
     Route: 048
     Dates: start: 201308

REACTIONS (1)
  - Gastric disorder [Unknown]
